FAERS Safety Report 10994526 (Version 1)
Quarter: 2015Q2

REPORT INFORMATION
  Report Type: Spontaneous
  Country: US (occurrence: None)
  Receive Date: 20150406
  Receipt Date: 20150406
  Transmission Date: 20150821
  Serious: Yes (Hospitalization)
  Sender: FDA-Public Use
  Company Number: None

PATIENT
  Age: 59 Year
  Weight: 56.7 kg

DRUGS (2)
  1. CRIZOTINIB [Suspect]
     Active Substance: CRIZOTINIB
     Indication: BREAST CANCER METASTATIC
     Route: 048
     Dates: start: 20150115, end: 20150319
  2. SUNITINIB (25 MG); MFR: PFIZER [Suspect]
     Active Substance: SUNITINIB
     Indication: BREAST CANCER METASTATIC
     Route: 048
     Dates: start: 20150115, end: 20150319

REACTIONS (11)
  - Malignant neoplasm progression [None]
  - Hypotension [None]
  - Metastases to central nervous system [None]
  - Embolic cerebral infarction [None]
  - Headache [None]
  - Grip strength decreased [None]
  - Hypoaesthesia [None]
  - Anaemia [None]
  - Joint range of motion decreased [None]
  - Metastases to meninges [None]
  - Cerebral infarction [None]

NARRATIVE: CASE EVENT DATE: 20150319
